FAERS Safety Report 24942854 (Version 2)
Quarter: 2025Q3

REPORT INFORMATION
  Report Type: Spontaneous
  Country: US (occurrence: US)
  Receive Date: 20250207
  Receipt Date: 20250816
  Transmission Date: 20251021
  Serious: No
  Sender: SANOFI AVENTIS
  Company Number: US-SA-2025SA037488

PATIENT
  Age: 74 Year
  Sex: Female
  Weight: 78.18 kg

DRUGS (1)
  1. DUPIXENT [Suspect]
     Active Substance: DUPILUMAB
     Indication: Asthma
     Dosage: 300 MG, QOW
     Route: 058

REACTIONS (5)
  - Bronchitis [Not Recovered/Not Resolved]
  - Eating disorder [Not Recovered/Not Resolved]
  - Illness [Not Recovered/Not Resolved]
  - Mastectomy [Unknown]
  - Micturition urgency [Unknown]
